FAERS Safety Report 10096934 (Version 3)
Quarter: 2015Q3

REPORT INFORMATION
  Report Type: Spontaneous
  Country: US (occurrence: US)
  Receive Date: 20140422
  Receipt Date: 20150812
  Transmission Date: 20151125
  Serious: No
  Sender: FDA-Public Use
  Company Number: US-GILEAD-2012-0061117

PATIENT
  Age: 57 Year
  Sex: Male

DRUGS (3)
  1. ADCIRCA [Concomitant]
     Active Substance: TADALAFIL
  2. LETAIRIS [Suspect]
     Active Substance: AMBRISENTAN
     Indication: COR PULMONALE CHRONIC
     Dosage: 10 MG, QD
     Route: 048
     Dates: start: 20120524
  3. REMODULIN [Suspect]
     Active Substance: TREPROSTINIL

REACTIONS (5)
  - Swelling [Unknown]
  - Catheter site haemorrhage [Unknown]
  - Ascites [Not Recovered/Not Resolved]
  - Erythema [Unknown]
  - Pain [Not Recovered/Not Resolved]
